FAERS Safety Report 8564629-1 (Version None)
Quarter: 2012Q3

REPORT INFORMATION
  Report Type: 
  Country: None (occurrence: None)
  Receive Date: 20120727
  Receipt Date: 20120727
  Transmission Date: 20120928
  Serious: Yes (Life-Threatening)
  Sender: FDA-Public Use
  Company Number: None

PATIENT
  Sex: Female
  Weight: 85 kg

DRUGS (2)
  1. FOSAPREPITANT -EMEND- 150 MG PER VIAL MERCK SHARP AND DOHME CORP. [Suspect]
     Indication: CERVIX CARCINOMA
     Dosage: 5 ML -150 MG- ONCE IV
     Route: 042
     Dates: start: 20120719, end: 20120719
  2. FOSAPREPITANT -EMEND- 150 MG PER VIAL MERCK SHARP AND DOHME CORP [Suspect]
     Indication: CERVIX CARCINOMA
     Dosage: 5 ML -150 MG- ONCE IV
     Route: 042
     Dates: start: 20120726, end: 20120726

REACTIONS (4)
  - DYSPNOEA [None]
  - SENSORY DISTURBANCE [None]
  - FLUSHING [None]
  - INFUSION RELATED REACTION [None]
